FAERS Safety Report 9306354 (Version 1)
Quarter: 2012Q4

REPORT INFORMATION
  Report Type: Spontaneous
  Country: US (occurrence: None)
  Receive Date: 20121204
  Receipt Date: 20121204
  Transmission Date: 20130627
  Serious: Yes (Death)
  Sender: FDA-Public Use
  Company Number: 141253 2

PATIENT
  Age: 62 Year
  Sex: Female
  Weight: 65 kg

DRUGS (1)
  1. ETOPOSIDE [Suspect]
     Indication: NON-SMALL CELL LUNG CANCER
     Route: 042
     Dates: start: 20120326, end: 20120423

REACTIONS (11)
  - Vena cava thrombosis [None]
  - Haemoglobin decreased [None]
  - Subclavian vein thrombosis [None]
  - Jugular vein thrombosis [None]
  - Nausea [None]
  - Agitation [None]
  - Anxiety [None]
  - Pain [None]
  - Toxicity to various agents [None]
  - Depressed level of consciousness [None]
  - Non-small cell lung cancer [None]
